FAERS Safety Report 24027654 (Version 1)
Quarter: 2024Q2

REPORT INFORMATION
  Report Type: Spontaneous
  Country: US (occurrence: US)
  Receive Date: 20240628
  Receipt Date: 20240628
  Transmission Date: 20240716
  Serious: Yes (Other)
  Sender: FDA-Public Use
  Company Number: US-MLMSERVICE-20240611-PI094352-00111-1

PATIENT
  Age: 71 Year
  Sex: Female

DRUGS (27)
  1. SULFAMETHOXAZOLE\TRIMETHOPRIM [Suspect]
     Active Substance: SULFAMETHOXAZOLE\TRIMETHOPRIM
     Indication: Lung abscess
     Dosage: UNK
     Route: 048
  2. SULFAMETHOXAZOLE\TRIMETHOPRIM [Suspect]
     Active Substance: SULFAMETHOXAZOLE\TRIMETHOPRIM
     Indication: Abscess soft tissue
  3. SULFAMETHOXAZOLE\TRIMETHOPRIM [Suspect]
     Active Substance: SULFAMETHOXAZOLE\TRIMETHOPRIM
     Indication: Pulmonary nocardiosis
  4. SULFAMETHOXAZOLE\TRIMETHOPRIM [Suspect]
     Active Substance: SULFAMETHOXAZOLE\TRIMETHOPRIM
     Indication: Cerebral nocardiosis
  5. SULFAMETHOXAZOLE\TRIMETHOPRIM [Suspect]
     Active Substance: SULFAMETHOXAZOLE\TRIMETHOPRIM
     Indication: Paraspinal abscess
  6. SULFAMETHOXAZOLE\TRIMETHOPRIM [Suspect]
     Active Substance: SULFAMETHOXAZOLE\TRIMETHOPRIM
     Indication: Pneumonia fungal
  7. SULFAMETHOXAZOLE\TRIMETHOPRIM [Suspect]
     Active Substance: SULFAMETHOXAZOLE\TRIMETHOPRIM
     Indication: Nocardiosis
  8. SULFAMETHOXAZOLE\TRIMETHOPRIM [Suspect]
     Active Substance: SULFAMETHOXAZOLE\TRIMETHOPRIM
     Indication: Brain abscess
  9. DEXAMETHASONE [Concomitant]
     Active Substance: DEXAMETHASONE
     Indication: COVID-19
     Dosage: 10 MILLIGRAM (10-40 MG AT A TIME)
     Route: 042
  10. DEXAMETHASONE [Concomitant]
     Active Substance: DEXAMETHASONE
     Indication: Respiratory failure
     Dosage: 40 MILLIGRAM (10-40 MG AT A TIME)
     Route: 042
  11. DEXAMETHASONE [Concomitant]
     Active Substance: DEXAMETHASONE
     Indication: Hypoxia
     Dosage: 10 MILLIGRAM, TWO TIMES A DAY
     Route: 042
  12. IMIPENEM [Concomitant]
     Active Substance: IMIPENEM
     Indication: Nocardiosis
     Dosage: 500 MILLIGRAM, FOUR TIMES/DAY
     Route: 042
  13. IMIPENEM [Concomitant]
     Active Substance: IMIPENEM
     Indication: Lung abscess
  14. IMIPENEM [Concomitant]
     Active Substance: IMIPENEM
     Indication: Paraspinal abscess
  15. IMIPENEM [Concomitant]
     Active Substance: IMIPENEM
     Indication: Abscess soft tissue
  16. IMIPENEM [Concomitant]
     Active Substance: IMIPENEM
     Indication: Brain abscess
  17. IMIPENEM [Concomitant]
     Active Substance: IMIPENEM
     Indication: Cerebral nocardiosis
  18. IMIPENEM [Concomitant]
     Active Substance: IMIPENEM
     Indication: Pulmonary nocardiosis
  19. IMIPENEM [Concomitant]
     Active Substance: IMIPENEM
     Indication: Pneumonia fungal
  20. IMIPENEM [Concomitant]
     Active Substance: IMIPENEM
     Indication: Paraspinal abscess
  21. IMIPENEM [Concomitant]
     Active Substance: IMIPENEM
     Indication: Abscess soft tissue
  22. IMIPENEM [Concomitant]
     Active Substance: IMIPENEM
     Indication: Brain abscess
  23. IMIPENEM [Concomitant]
     Active Substance: IMIPENEM
     Indication: Cerebral nocardiosis
  24. IMIPENEM [Concomitant]
     Active Substance: IMIPENEM
     Indication: Pulmonary nocardiosis
  25. OXYGEN [Concomitant]
     Active Substance: OXYGEN
     Indication: Oxygen therapy
     Dosage: 4 LITER (2-4 L/MIN), EVERY MINUTE
     Route: 065
  26. OXYGEN [Concomitant]
     Active Substance: OXYGEN
     Indication: Chronic obstructive pulmonary disease
     Dosage: 2 LITER, EVERY MINUTE (2-4 L/MIN)
     Route: 065
  27. OXYGEN [Concomitant]
     Active Substance: OXYGEN
     Dosage: 5 LITER
     Route: 065

REACTIONS (1)
  - Nephrolithiasis [Unknown]
